FAERS Safety Report 20457959 (Version 3)
Quarter: 2022Q3

REPORT INFORMATION
  Report Type: Spontaneous
  Country: US (occurrence: US)
  Receive Date: 20220211
  Receipt Date: 20220819
  Transmission Date: 20221027
  Serious: Yes (Other)
  Sender: FDA-Public Use
  Company Number: US-PFIZER INC-202200158670

PATIENT
  Age: 65 Year
  Sex: Female

DRUGS (1)
  1. XELJANZ XR [Suspect]
     Active Substance: TOFACITINIB CITRATE
     Indication: Rheumatoid arthritis
     Dosage: 11 MG, DAILY
     Route: 048
     Dates: start: 2021

REACTIONS (6)
  - Hernia [Unknown]
  - Drug ineffective [Unknown]
  - Fatigue [Unknown]
  - Discouragement [Unknown]
  - Depressed mood [Unknown]
  - Pruritus [Unknown]

NARRATIVE: CASE EVENT DATE: 20210901
